FAERS Safety Report 9921312 (Version 2)
Quarter: 2014Q1

REPORT INFORMATION
  Report Type: Report from Study
  Country: US (occurrence: US)
  Receive Date: 20140225
  Receipt Date: 20140318
  Transmission Date: 20141002
  Serious: No
  Sender: FDA-Public Use
  Company Number: PHEH2014US003455

PATIENT
  Sex: Female
  Weight: 72.56 kg

DRUGS (8)
  1. GILENYA [Suspect]
     Indication: MULTIPLE SCLEROSIS
     Dosage: 0.5 MG, QD
     Route: 048
     Dates: start: 20131217
  2. ASA [Concomitant]
  3. LEVOTHYROXINE [Concomitant]
  4. PRAVASTATIN [Concomitant]
  5. DECADRON                                /CAN/ [Concomitant]
     Dosage: 2 MG, UNK
  6. ANCEF [Concomitant]
     Dosage: 50 MG, UNK
  7. DEXACIDIN [Concomitant]
  8. PRED FORTE [Concomitant]

REACTIONS (1)
  - No adverse event [Unknown]
